FAERS Safety Report 14448769 (Version 1)
Quarter: 2018Q1

REPORT INFORMATION
  Report Type: Report from Study
  Country: US (occurrence: US)
  Receive Date: 20180126
  Receipt Date: 20180126
  Transmission Date: 20180509
  Serious: Yes (Death, Other)
  Sender: FDA-Public Use
  Company Number: US-B.I. PHARMACEUTICALS,INC./RIDGEFIELD-2018-BI-004656

PATIENT

DRUGS (4)
  1. PERSANTIN [Suspect]
     Active Substance: DIPYRIDAMOLE
     Indication: MALIGNANT NEOPLASM OF AMPULLA OF VATER
     Dosage: DAYS 0-3, 28-31, 70-73, 98-101, 126- 129, 154-157 (75 MG/DAY P.O. QID)
     Route: 048
  2. MITOMYCIN C [Concomitant]
     Active Substance: MITOMYCIN
     Indication: MALIGNANT NEOPLASM OF AMPULLA OF VATER
     Dosage: 10 MG/M2/DAY ON DAYS 1, 71, 127
     Route: 065
  3. LEUCOVORIN. [Concomitant]
     Active Substance: LEUCOVORIN
     Indication: MALIGNANT NEOPLASM OF AMPULLA OF VATER
     Dosage: 20 MG/M2/24H IV BOLUS ON DAYS 1-3, 29- 31, 71-73 99-101, 127-129, 155-157
     Route: 042
  4. 5-FLUOROURACIL [Concomitant]
     Active Substance: FLUOROURACIL
     Indication: MALIGNANT NEOPLASM OF AMPULLA OF VATER
     Dosage: (400 MG/M2/24H IV X 3 DAYS)
     Route: 042

REACTIONS (3)
  - Disease recurrence [Unknown]
  - Toxicity to various agents [Unknown]
  - Intestinal gangrene [Fatal]
